FAERS Safety Report 6751861-2 (Version None)
Quarter: 2010Q2

REPORT INFORMATION
  Report Type: 
  Country: None (occurrence: None)
  Receive Date: 20100519
  Receipt Date: 20100223
  Transmission Date: 20101027
  Serious: Yes (Hospitalization)
  Sender: FDA-Public Use
  Company Number: 2010SP012056

PATIENT
  Age: 32 Year
  Sex: Female

DRUGS (1)
  1. FOLLISTIM AQ [Suspect]
     Dosage: 225 MG; PO
     Route: 048
     Dates: start: 20100101

REACTIONS (1)
  - OVARIAN HYPERSTIMULATION SYNDROME [None]
